FAERS Safety Report 10200418 (Version 1)
Quarter: 2014Q2

REPORT INFORMATION
  Report Type: Spontaneous
  Country: SI (occurrence: SI)
  Receive Date: 20140528
  Receipt Date: 20140528
  Transmission Date: 20141212
  Serious: Yes (Other)
  Sender: FDA-Public Use
  Company Number: SI-AMGEN-SVNSP2014037788

PATIENT
  Sex: Female

DRUGS (9)
  1. PROLIA [Suspect]
     Indication: PRODUCT USED FOR UNKNOWN INDICATION
     Dosage: UNK
     Route: 065
     Dates: start: 20131111
  2. FOSTER                             /00500401/ [Concomitant]
     Route: 065
  3. MONTELUCAST [Concomitant]
     Route: 065
  4. BERODUAL [Concomitant]
     Route: 065
  5. PLIVIT D3 [Concomitant]
     Route: 065
  6. CALCIUM CARBONATE [Concomitant]
     Route: 065
  7. NEXIUM                             /01479302/ [Concomitant]
     Route: 065
  8. LUMIGAN [Concomitant]
     Route: 065
  9. NIACIN [Concomitant]
     Route: 065

REACTIONS (3)
  - Respiratory tract infection [Unknown]
  - Asthma [Unknown]
  - Bronchial hyperreactivity [Unknown]
